FAERS Safety Report 17210460 (Version 1)
Quarter: 2019Q4

REPORT INFORMATION
  Report Type: Report from Study
  Country: US (occurrence: US)
  Receive Date: 20191227
  Receipt Date: 20191227
  Transmission Date: 20200122
  Serious: Yes (Hospitalization)
  Sender: FDA-Public Use
  Company Number: US-EISAI MEDICAL RESEARCH-EC-2019-067268

PATIENT
  Age: 55 Year
  Sex: Male
  Weight: 74 kg

DRUGS (20)
  1. LENVIMA [Suspect]
     Active Substance: LENVATINIB
     Indication: RENAL CANCER
     Route: 048
     Dates: start: 20191203, end: 201912
  2. SERTRALINE [Concomitant]
     Active Substance: SERTRALINE HYDROCHLORIDE
  3. CHOLESTYRAMINE. [Concomitant]
     Active Substance: CHOLESTYRAMINE
  4. TRULICITY [Concomitant]
     Active Substance: DULAGLUTIDE
  5. ONDANSETRON [Concomitant]
     Active Substance: ONDANSETRON
  6. TADALAFIL. [Concomitant]
     Active Substance: TADALAFIL
  7. GLIPIZIDE. [Concomitant]
     Active Substance: GLIPIZIDE
  8. LEVOTHYROXINE. [Concomitant]
     Active Substance: LEVOTHYROXINE
  9. TRESIBA [Concomitant]
     Active Substance: INSULIN DEGLUDEC
  10. AFINITOR [Concomitant]
     Active Substance: EVEROLIMUS
  11. TYLENOL [Concomitant]
     Active Substance: ACETAMINOPHEN
  12. IMMUNE SUPPORT [Concomitant]
  13. METOCLOPRAMIDE. [Concomitant]
     Active Substance: METOCLOPRAMIDE
  14. FINASTERIDE. [Concomitant]
     Active Substance: FINASTERIDE
  15. MAG-OX [Concomitant]
     Active Substance: MAGNESIUM OXIDE
  16. OMEPRAZOLE. [Concomitant]
     Active Substance: OMEPRAZOLE
  17. LISINOPRIL. [Concomitant]
     Active Substance: LISINOPRIL
  18. LENVIMA [Suspect]
     Active Substance: LENVATINIB
     Route: 048
     Dates: start: 201912, end: 20191220
  19. METFORMIN [Concomitant]
     Active Substance: METFORMIN HYDROCHLORIDE
  20. DICYCLOMINE [Concomitant]
     Active Substance: DICYCLOMINE HYDROCHLORIDE

REACTIONS (3)
  - Dehydration [Unknown]
  - Vomiting [Unknown]
  - Nausea [Unknown]

NARRATIVE: CASE EVENT DATE: 201912
